FAERS Safety Report 6451355-8 (Version None)
Quarter: 2009Q4

REPORT INFORMATION
  Report Type: 
  Country: None (occurrence: None)
  Receive Date: 20091123
  Receipt Date: 20091120
  Transmission Date: 20100525
  Serious: No
  Sender: FDA-Public Use
  Company Number: US-B.I. PHARMACEUTICALS,INC./RIDGEFIELD-2009-BP-09915BP

PATIENT
  Sex: Female

DRUGS (10)
  1. SPIRIVA [Suspect]
     Indication: DYSPNOEA
     Dosage: 18 MCG
     Route: 055
     Dates: start: 20090707
  2. NORVASC [Concomitant]
     Indication: HYPERTENSION
  3. TENORMIN [Concomitant]
     Indication: HYPERTENSION
  4. LASIX [Concomitant]
     Indication: HYPERTENSION
  5. IC KLOR-CON [Concomitant]
  6. ZESTORETIC [Concomitant]
  7. TRANENE [Concomitant]
  8. VITAMINS [Concomitant]
  9. GARLIC [Concomitant]
  10. CENTRUM [Concomitant]

REACTIONS (1)
  - DYSPNOEA [None]
